FAERS Safety Report 7407494-8 (Version None)
Quarter: 2011Q2

REPORT INFORMATION
  Report Type: 
  Country: None (occurrence: None)
  Receive Date: 20110412
  Receipt Date: 20110329
  Transmission Date: 20111010
  Serious: Yes (Death, Hospitalization, Other)
  Sender: FDA-Public Use
  Company Number: KR-PAR PHARMACEUTICAL, INC-2011SCPR002830

PATIENT
  Age: 67 Year
  Sex: Male

DRUGS (4)
  1. CEFOTAXIME [Concomitant]
     Indication: LIVER ABSCESS
     Dosage: 6 G PER DAY FOR THREE WEEKS
     Route: 051
  2. METRONIDAZOLE [Suspect]
     Indication: LIVER ABSCESS
     Dosage: 500 MG, TID  FOR THREE WEEKS
     Route: 051
  3. METRONIDAZOLE [Suspect]
     Dosage: 500 MG, TID
     Route: 048
  4. CEFIXIME [Concomitant]
     Indication: LIVER ABSCESS
     Dosage: 200 MG, PER DAY
     Route: 065

REACTIONS (1)
  - NEUROTOXICITY [None]
